FAERS Safety Report 9190681 (Version 4)
Quarter: 2016Q2

REPORT INFORMATION
  Report Type: Report from Study
  Country: BR (occurrence: BR)
  Receive Date: 20130326
  Receipt Date: 20160404
  Transmission Date: 20160815
  Serious: Yes (Other)
  Sender: FDA-Public Use
  Company Number: BR-ROCHE-1206337

PATIENT

DRUGS (2)
  1. CAPECITABINE. [Suspect]
     Active Substance: CAPECITABINE
     Indication: SQUAMOUS CELL CARCINOMA
     Dosage: 12/12HS
     Route: 065
  2. MITOMYCIN. [Suspect]
     Active Substance: MITOMYCIN
     Indication: SQUAMOUS CELL CARCINOMA
     Route: 065

REACTIONS (8)
  - Lymphopenia [Unknown]
  - Thrombocytopenia [Unknown]
  - Dehydration [Unknown]
  - Diarrhoea [Unknown]
  - Radiation skin injury [Unknown]
  - Leukopenia [Unknown]
  - Vomiting [Unknown]
  - Neutropenia [Unknown]
